FAERS Safety Report 15535904 (Version 1)
Quarter: 2018Q4

REPORT INFORMATION
  Report Type: Spontaneous
  Country: US (occurrence: US)
  Receive Date: 20181022
  Receipt Date: 20181022
  Transmission Date: 20190205
  Serious: No
  Sender: FDA-Public Use
  Company Number: US-PFIZER INC-2018421236

PATIENT
  Sex: Male

DRUGS (1)
  1. LYRICA [Suspect]
     Active Substance: PREGABALIN
     Indication: NEUROPATHY PERIPHERAL
     Dosage: 100 MG, 2X/DAY [LYRICA 100 MG BID FOR 4 MONTHS]

REACTIONS (4)
  - Feeling hot [Unknown]
  - Paraesthesia [Unknown]
  - Feeling abnormal [Unknown]
  - Temperature difference of extremities [Unknown]
